FAERS Safety Report 7438037-0 (Version None)
Quarter: 2011Q2

REPORT INFORMATION
  Report Type: 
  Country: None (occurrence: None)
  Receive Date: 20110426
  Receipt Date: 20110414
  Transmission Date: 20111010
  Serious: Yes (Other)
  Sender: FDA-Public Use
  Company Number: PHHY2011US06970

PATIENT
  Sex: Female

DRUGS (11)
  1. RECLAST [Suspect]
     Indication: OSTEOPOROSIS
     Dosage: 5 MG
     Route: 042
     Dates: start: 20110117, end: 20110124
  2. HYOSCYAMINE SULFATE [Concomitant]
     Dosage: UNK
     Route: 060
     Dates: end: 20090601
  3. CONCERTA [Concomitant]
     Dosage: 2 TAB BY MOUTH EVERY MORNING
  4. DELSYM [Concomitant]
     Dosage: 30 MG/5 ML
     Dates: start: 20090219, end: 20090505
  5. NASONEX [Concomitant]
     Dosage: UNK
     Dates: start: 20090220, end: 20091120
  6. LORATADINE [Concomitant]
     Dosage: UNK
     Dates: start: 20090721, end: 20090721
  7. ROPINIROLE [Concomitant]
     Dosage: UNK
     Dates: start: 20080516, end: 20090108
  8. TOPAMAX [Concomitant]
     Dosage: 100 MG
     Dates: start: 20080613, end: 20090108
  9. RITALIN [Concomitant]
     Dosage: 20 MG
  10. TRAMADOL [Concomitant]
     Dosage: 50 MG
     Dates: start: 20090721, end: 20090721
  11. CYMBALTA [Concomitant]
     Dosage: UNK
     Dates: start: 20090408, end: 20090408

REACTIONS (10)
  - EYE PAIN [None]
  - DELUSION [None]
  - ABDOMINAL MASS [None]
  - FEELING COLD [None]
  - DYSPNOEA [None]
  - PAIN [None]
  - CHEST PAIN [None]
  - PYREXIA [None]
  - PAIN OF SKIN [None]
  - NAUSEA [None]
